FAERS Safety Report 6076998-5 (Version None)
Quarter: 2009Q1

REPORT INFORMATION
  Report Type: 
  Country: None (occurrence: None)
  Receive Date: 20090211
  Receipt Date: 20090211
  Transmission Date: 20090719
  Serious: Yes (Hospitalization)
  Sender: FDA-Public Use
  Company Number: None

PATIENT
  Sex: Female
  Weight: 94 kg

DRUGS (3)
  1. CYTARABINE [Suspect]
     Dosage: 1400 MG
     Dates: end: 20081013
  2. DAUNORUBICIN HCL [Suspect]
     Dosage: 540 MG
     Dates: end: 20081008
  3. ETOPOSIDE [Suspect]
     Dosage: 600 MG
     Dates: end: 20081008

REACTIONS (9)
  - ATELECTASIS [None]
  - DISSEMINATED INTRAVASCULAR COAGULATION [None]
  - HAEMOPTYSIS [None]
  - NAUSEA [None]
  - PERICARDITIS [None]
  - PNEUMONIA [None]
  - PULMONARY ALVEOLAR HAEMORRHAGE [None]
  - RETCHING [None]
  - RETROPERITONEAL HAEMORRHAGE [None]
